FAERS Safety Report 7926767 (Version 4)
Quarter: 2014Q2

REPORT INFORMATION
  Report Type: Spontaneous
  Country: US (occurrence: US)
  Receive Date: 20110502
  Receipt Date: 20140403
  Transmission Date: 20141212
  Serious: Yes (Hospitalization, Other)
  Sender: FDA-Public Use
  Company Number: US-ASTRAZENECA-2011SE08877

PATIENT
  Age: 41 Year
  Sex: Female
  Weight: 86.2 kg

DRUGS (6)
  1. NEXIUM [Suspect]
     Indication: GASTROOESOPHAGEAL REFLUX DISEASE
     Route: 048
     Dates: end: 20140310
  2. HYDROCHLOROTHIAZIDE [Concomitant]
     Indication: BLOOD PRESSURE ABNORMAL
     Route: 048
     Dates: start: 2008
  3. POTASSIUM [Concomitant]
     Indication: ELECTROLYTE SUBSTITUTION THERAPY
     Route: 048
     Dates: start: 2008
  4. PREDNISONE [Concomitant]
     Dosage: DAILY
  5. PREDNISONE [Concomitant]
     Route: 048
  6. PILLS [Concomitant]

REACTIONS (10)
  - Pulmonary mass [Unknown]
  - Cerebrovascular accident [Unknown]
  - Blindness transient [Recovered/Resolved]
  - Gastrooesophageal reflux disease [Unknown]
  - Dyspepsia [Unknown]
  - Chest pain [Unknown]
  - Throat irritation [Unknown]
  - Weight decreased [Unknown]
  - Retching [Unknown]
  - Drug dose omission [Not Recovered/Not Resolved]
